FAERS Safety Report 21084007 (Version 1)
Quarter: 2022Q3

REPORT INFORMATION
  Report Type: Report from Study
  Country: US (occurrence: US)
  Receive Date: 20220714
  Receipt Date: 20220714
  Transmission Date: 20221026
  Serious: Yes (Death, Life-Threatening, Hospitalization, Other)
  Sender: FDA-Public Use
  Company Number: US-BRISTOL-MYERS SQUIBB COMPANY-2022-069450

PATIENT
  Age: 55 Year
  Sex: Male
  Weight: 77.7 kg

DRUGS (38)
  1. REVLIMID [Suspect]
     Active Substance: LENALIDOMIDE
     Indication: Plasma cell myeloma
     Dosage: 21 DAYS ON 7 DAYS OFF
     Route: 048
     Dates: start: 20160205, end: 20160617
  2. POMALIDOMIDE [Suspect]
     Active Substance: POMALIDOMIDE
     Indication: Product used for unknown indication
     Dosage: FREQ:1-21, Q 28 DAYS
     Route: 048
     Dates: start: 20171227, end: 20180227
  3. POMALIDOMIDE [Suspect]
     Active Substance: POMALIDOMIDE
     Dosage: FREQ:1-21, Q 28 DAYS
     Route: 048
     Dates: start: 20180731, end: 20181023
  4. POMALIDOMIDE [Suspect]
     Active Substance: POMALIDOMIDE
     Dosage: FREQ:1-21, Q 28 DAYS
     Route: 048
     Dates: start: 20181115, end: 20200204
  5. POMALIDOMIDE [Suspect]
     Active Substance: POMALIDOMIDE
     Dosage: FREQ:1-21, Q 28 DAYS
     Route: 048
     Dates: start: 20200204, end: 20200624
  6. DEXAMETHASONE [Suspect]
     Active Substance: DEXAMETHASONE
     Indication: Plasma cell myeloma
     Route: 048
     Dates: start: 20150616, end: 20150915
  7. DEXAMETHASONE [Suspect]
     Active Substance: DEXAMETHASONE
     Route: 048
     Dates: start: 20211026, end: 20211119
  8. DEXAMETHASONE [Suspect]
     Active Substance: DEXAMETHASONE
     Dosage: DAY-1-4, Q, 28 DAYS
     Route: 048
     Dates: start: 20220105, end: 20220219
  9. DEXAMETHASONE [Suspect]
     Active Substance: DEXAMETHASONE
     Route: 048
     Dates: start: 20160205, end: 20160617
  10. DEXAMETHASONE [Suspect]
     Active Substance: DEXAMETHASONE
     Dosage: FREQ:WEEKLY
     Route: 048
     Dates: start: 20171227, end: 20180227
  11. DEXAMETHASONE [Suspect]
     Active Substance: DEXAMETHASONE
     Route: 048
     Dates: start: 20181115, end: 20200624
  12. DEXAMETHASONE [Suspect]
     Active Substance: DEXAMETHASONE
     Route: 048
     Dates: start: 20200803, end: 20200824
  13. VELCADE [Suspect]
     Active Substance: BORTEZOMIB
     Indication: Product used for unknown indication
     Dosage: DAY: 1, 4, 8, 11 DAY (21), 1.3 MG/M^2
     Route: 058
     Dates: start: 20150616, end: 20150915
  14. VELCADE [Suspect]
     Active Substance: BORTEZOMIB
     Route: 058
     Dates: start: 20180731, end: 20180731
  15. VELCADE [Suspect]
     Active Substance: BORTEZOMIB
     Dosage: 1.3 MG/M^2, 1 MULTIPLIES WEEKELY, DAY1 Q7 DAY, 1 WEEK OFF Q 14 DAYS?REASON: REALPSE DISEASE PROGRESS
     Route: 058
  16. VELCADE [Suspect]
     Active Substance: BORTEZOMIB
     Route: 058
     Dates: start: 20200803, end: 20200821
  17. ALKERAN [Suspect]
     Active Substance: MELPHALAN
     Indication: Product used for unknown indication
     Route: 042
     Dates: start: 20131014, end: 20151014
  18. ALKERAN [Suspect]
     Active Substance: MELPHALAN
     Dosage: DAY-2
     Route: 042
     Dates: start: 20180404, end: 20180404
  19. ALKERAN [Suspect]
     Active Substance: MELPHALAN
     Dosage: 300 MG/M^2
     Route: 042
     Dates: start: 20150616, end: 20150915
  20. CYTOXAN [Suspect]
     Active Substance: CYCLOPHOSPHAMIDE
     Indication: Plasma cell myeloma
     Route: 042
     Dates: start: 20200909, end: 20200911
  21. CYTOXAN [Suspect]
     Active Substance: CYCLOPHOSPHAMIDE
     Dosage: 400 MG/M^2, DAY 1-4 28 DAYS
     Route: 042
     Dates: start: 20220105, end: 20220219
  22. CYTOXAN [Suspect]
     Active Substance: CYCLOPHOSPHAMIDE
     Dosage: 300 MG/M^2
     Route: 042
     Dates: start: 20200803, end: 20200821
  23. CARFILZOMIB [Suspect]
     Active Substance: CARFILZOMIB
     Indication: Product used for unknown indication
     Route: 065
     Dates: start: 20211026, end: 20211119
  24. NINLARO [Suspect]
     Active Substance: IXAZOMIB CITRATE
     Indication: Product used for unknown indication
     Dosage: DAY: 1, 8, 15 Q 28 DAYS
     Route: 048
     Dates: start: 20160617, end: 20171128
  25. DARZALEX [Suspect]
     Active Substance: DARATUMUMAB
     Indication: Product used for unknown indication
     Route: 042
     Dates: start: 20211026, end: 20211119
  26. DARZALEX [Suspect]
     Active Substance: DARATUMUMAB
     Route: 042
     Dates: start: 20171227, end: 20180227
  27. DARZALEX [Suspect]
     Active Substance: DARATUMUMAB
     Dosage: QW
     Route: 042
     Dates: start: 20181115, end: 20200624
  28. DARZALEX [Suspect]
     Active Substance: DARATUMUMAB
     Dosage: QD
     Route: 042
     Dates: start: 20200909, end: 20200911
  29. DARZALEX [Suspect]
     Active Substance: DARATUMUMAB
     Dosage: ONCE
     Route: 042
     Dates: start: 20200914, end: 20200914
  30. DARZALEX [Suspect]
     Active Substance: DARATUMUMAB
     Dosage: 7.5 MG/M^2
     Route: 042
     Dates: start: 20220105, end: 20220219
  31. DARZALEX [Suspect]
     Active Substance: DARATUMUMAB
     Dosage: 30.0 MG/M^2, DAY1-4, Q28 DAYS
     Route: 042
     Dates: start: 20220105, end: 20220219
  32. FLUDARABINE [Suspect]
     Active Substance: FLUDARABINE PHOSPHATE
     Indication: Product used for unknown indication
     Dosage: QD
     Route: 042
     Dates: start: 20200909, end: 20200911
  33. FLUDARABINE [Suspect]
     Active Substance: FLUDARABINE PHOSPHATE
     Route: 042
     Dates: start: 20200914, end: 20200914
  34. FLUDARABINE [Suspect]
     Active Substance: FLUDARABINE PHOSPHATE
     Dosage: 7.5 MG/M^2
     Route: 042
     Dates: start: 20220105, end: 20220219
  35. FLUDARABINE [Suspect]
     Active Substance: FLUDARABINE PHOSPHATE
     Dosage: 30.0 MG/M^2, DAY 1-4, Q 28 DAYS
     Route: 042
     Dates: start: 20220105, end: 20220219
  36. FLUDARABINE [Suspect]
     Active Substance: FLUDARABINE PHOSPHATE
     Dosage: DAY 1,8, 15 (28 DAYS)
     Route: 048
     Dates: start: 20160205, end: 20160617
  37. LATANOPROST\TIMOLOL [Suspect]
     Active Substance: LATANOPROST\TIMOLOL
     Indication: Product used for unknown indication
     Dosage: DAY 1, 8, 15 (28 DAYS)
     Route: 048
     Dates: start: 20160205, end: 20160617
  38. CISPLATIN [Suspect]
     Active Substance: CISPLATIN
     Indication: Plasma cell myeloma
     Dosage: DAY 1-4 Q 28 DAYS
     Route: 065
     Dates: start: 20220105, end: 20220219

REACTIONS (9)
  - Acute kidney injury [Not Recovered/Not Resolved]
  - Hypotension [Not Recovered/Not Resolved]
  - Shock [Fatal]
  - Pulmonary embolism [Not Recovered/Not Resolved]
  - Haematuria [Not Recovered/Not Resolved]
  - Febrile neutropenia [Not Recovered/Not Resolved]
  - Atrial fibrillation [Not Recovered/Not Resolved]
  - COVID-19 [Not Recovered/Not Resolved]
  - Organising pneumonia [Not Recovered/Not Resolved]

NARRATIVE: CASE EVENT DATE: 20211229
